FAERS Safety Report 9340882 (Version 1)
Quarter: 2013Q2

REPORT INFORMATION
  Report Type: Spontaneous
  Country: US (occurrence: US)
  Receive Date: 20130610
  Receipt Date: 20130610
  Transmission Date: 20140414
  Serious: Yes (Hospitalization, Other)
  Sender: FDA-Public Use
  Company Number: US-GILEAD-2013-0076499

PATIENT
  Sex: Male

DRUGS (4)
  1. STRIBILD [Suspect]
     Indication: HIV INFECTION
     Dosage: UNK
     Dates: start: 201305
  2. TRUVADA [Suspect]
     Indication: HIV INFECTION
  3. DARUNAVIR [Concomitant]
     Indication: HIV INFECTION
  4. RITONAVIR [Concomitant]
     Indication: HIV INFECTION

REACTIONS (4)
  - Dilatation intrahepatic duct acquired [Unknown]
  - Obstruction [Unknown]
  - Pancreatitis [Unknown]
  - Hepatic enzyme increased [Unknown]
